FAERS Safety Report 10400133 (Version 5)
Quarter: 2015Q3

REPORT INFORMATION
  Report Type: Spontaneous
  Country: US (occurrence: US)
  Receive Date: 20140821
  Receipt Date: 20150716
  Transmission Date: 20151125
  Serious: No
  Sender: FDA-Public Use
  Company Number: US-PFIZER INC-2014231361

PATIENT
  Age: 46 Year
  Sex: Female
  Weight: 57 kg

DRUGS (12)
  1. LYRICA [Suspect]
     Active Substance: PREGABALIN
     Indication: NEUROPATHY PERIPHERAL
     Dosage: 800 MG, PER DAY
  2. AMBIEN [Concomitant]
     Active Substance: ZOLPIDEM TARTRATE
     Dosage: 12.5 MG, 1X/DAY
     Route: 048
     Dates: start: 2013
  3. INSULIN GLULISINE [Concomitant]
     Active Substance: INSULIN GLULISINE
     Dosage: UNK, AS NEEDED
     Route: 058
  4. LYRICA [Suspect]
     Active Substance: PREGABALIN
     Indication: STIFF PERSON SYNDROME
     Dosage: 200 MG, 3X/DAY
  5. XANAX [Concomitant]
     Active Substance: ALPRAZOLAM
     Indication: ANXIETY
  6. BACLOFEN. [Concomitant]
     Active Substance: BACLOFEN
     Indication: MUSCLE SPASTICITY
     Dosage: 20 MG, AS NEEDED
     Route: 048
  7. CYMBALTA [Concomitant]
     Active Substance: DULOXETINE HYDROCHLORIDE
     Dosage: 60 MG, 2X/DAY
     Route: 048
  8. XANAX [Concomitant]
     Active Substance: ALPRAZOLAM
     Indication: STIFF PERSON SYNDROME
     Dosage: 1 MG, 4X/DAY
     Route: 048
  9. BACLOFEN INTRATHECAL SINTETICA [Concomitant]
     Active Substance: BACLOFEN
     Indication: STIFF PERSON SYNDROME
     Dosage: 1263 ?G, UNK
     Route: 037
  10. LYRICA [Suspect]
     Active Substance: PREGABALIN
     Indication: DIABETIC NEUROPATHY
     Dosage: 200 MG, 4X/DAY
     Route: 048
  11. CYMBALTA [Concomitant]
     Active Substance: DULOXETINE HYDROCHLORIDE
     Indication: DEPRESSION
     Dosage: 60 MG, 1X/DAY
     Route: 048
  12. LANTUS [Concomitant]
     Active Substance: INSULIN GLARGINE
     Indication: DIABETES MELLITUS
     Dosage: 20 DF, 1X/DAY
     Route: 058

REACTIONS (22)
  - Overdose [Unknown]
  - Feeling of relaxation [Unknown]
  - Tremor [Unknown]
  - Limb discomfort [Unknown]
  - Depression [Unknown]
  - Condition aggravated [Unknown]
  - Muscle spasms [Unknown]
  - Myalgia [Unknown]
  - Visual impairment [Unknown]
  - Muscular weakness [Unknown]
  - Constipation [Unknown]
  - Anxiety disorder [Unknown]
  - Neuralgia [Unknown]
  - Scoliosis [Unknown]
  - Somnolence [Unknown]
  - Hypoaesthesia [Unknown]
  - Paraesthesia [Unknown]
  - Psychomotor hyperactivity [Unknown]
  - Dyskinesia [Not Recovered/Not Resolved]
  - Asthenia [Unknown]
  - Arthralgia [Unknown]
  - Dry mouth [Unknown]
